FAERS Safety Report 23675815 (Version 1)
Quarter: 2024Q1

REPORT INFORMATION
  Report Type: Other
  Country: US (occurrence: None)
  Receive Date: 20240327
  Receipt Date: 20240327
  Transmission Date: 20240410
  Serious: Yes (Other)
  Sender: FDA-Public Use
  Company Number: US-ROCHE-3531066

PATIENT
  Age: 45 Year
  Sex: Male

DRUGS (1)
  1. RITUXIMAB [Suspect]
     Active Substance: RITUXIMAB
     Indication: Myasthenia gravis
     Route: 065
     Dates: start: 202108

REACTIONS (5)
  - Blindness [Unknown]
  - Dysphagia [Unknown]
  - Muscular weakness [Unknown]
  - Diplopia [Unknown]
  - Off label use [Unknown]
